FAERS Safety Report 6634944-7 (Version None)
Quarter: 2010Q1

REPORT INFORMATION
  Report Type: 
  Country: None (occurrence: None)
  Receive Date: 20100315
  Receipt Date: 20100303
  Transmission Date: 20100710
  Serious: Yes (Other)
  Sender: FDA-Public Use
  Company Number: US-PFIZER INC-2010028511

PATIENT
  Sex: Male

DRUGS (1)
  1. DILANTIN-125 [Suspect]
     Dosage: 100 MG, UNK

REACTIONS (1)
  - ANTICONVULSANT DRUG LEVEL DECREASED [None]
